FAERS Safety Report 7821893-1 (Version None)
Quarter: 2011Q4

REPORT INFORMATION
  Report Type: 
  Country: None (occurrence: None)
  Receive Date: 20111018
  Receipt Date: 20110808
  Transmission Date: 20120403
  Serious: No
  Sender: FDA-Public Use
  Company Number: US-ASTRAZENECA-2011SE29465

PATIENT
  Age: 54 Year
  Sex: Female

DRUGS (2)
  1. SYMBICORT [Suspect]
     Route: 055
  2. NEXIUM [Suspect]
     Route: 048

REACTIONS (6)
  - GASTROINTESTINAL DISORDER [None]
  - DYSGEUSIA [None]
  - DIABETES MELLITUS [None]
  - DYSPEPSIA [None]
  - THYROID DISORDER [None]
  - ERUCTATION [None]
